FAERS Safety Report 9469797 (Version 2)
Quarter: 2013Q3

REPORT INFORMATION
  Report Type: Report from Study
  Country: CA (occurrence: CA)
  Receive Date: 20130822
  Receipt Date: 20130822
  Transmission Date: 20140515
  Serious: Yes (Hospitalization)
  Sender: FDA-Public Use
  Company Number: CA-JNJFOC-20130717010

PATIENT
  Age: 56 Year
  Sex: Female
  Weight: 54.1 kg

DRUGS (9)
  1. REMICADE [Suspect]
     Indication: COLITIS ULCERATIVE
     Route: 042
     Dates: end: 201305
  2. REMICADE [Suspect]
     Indication: COLITIS ULCERATIVE
     Route: 042
     Dates: start: 20130122
  3. REMICADE [Suspect]
     Indication: COLITIS ULCERATIVE
     Route: 042
     Dates: start: 201305
  4. PREDNISONE [Concomitant]
     Route: 048
  5. SYNTHROID [Concomitant]
     Route: 065
  6. MULTIVITAMINS [Concomitant]
     Route: 065
  7. CALCIUM [Concomitant]
     Route: 065
  8. POLYSACCHARIDE-IRON COMPLEX [Concomitant]
     Route: 065
  9. FOLIC ACID [Concomitant]
     Route: 065

REACTIONS (4)
  - Colitis ulcerative [Recovered/Resolved]
  - Sepsis [Recovered/Resolved]
  - Electrolyte imbalance [Unknown]
  - Anaemia [Unknown]
